FAERS Safety Report 11633644 (Version 4)
Quarter: 2015Q4

REPORT INFORMATION
  Report Type: Spontaneous
  Country: KR (occurrence: KR)
  Receive Date: 20151015
  Receipt Date: 20151117
  Transmission Date: 20160304
  Serious: Yes (Hospitalization, Other)
  Sender: FDA-Public Use
  Company Number: KR-009507513-1510KOR007098

PATIENT
  Age: 24 Year
  Sex: Female
  Weight: 50.8 kg

DRUGS (1)
  1. DESOGESTREL (+) ETHINYL ESTRADIOL [Suspect]
     Active Substance: DESOGESTREL\ETHINYL ESTRADIOL
     Indication: CONTRACEPTION
     Dosage: UNK
     Route: 048

REACTIONS (8)
  - Aphasia [Unknown]
  - Intracranial venous sinus thrombosis [Unknown]
  - Syncope [Unknown]
  - Headache [Unknown]
  - Vision blurred [Unknown]
  - Memory impairment [Unknown]
  - Speech disorder [Unknown]
  - Epilepsy [Unknown]

NARRATIVE: CASE EVENT DATE: 201509
